FAERS Safety Report 7701761-6 (Version None)
Quarter: 2011Q3

REPORT INFORMATION
  Report Type: 
  Country: None (occurrence: None)
  Receive Date: 20110822
  Receipt Date: 20110812
  Transmission Date: 20111222
  Serious: Yes (Life-Threatening, Hospitalization)
  Sender: FDA-Public Use
  Company Number: US-BAYER-2011-009064

PATIENT
  Sex: Female
  Weight: 57 kg

DRUGS (3)
  1. DROSPIRENONE AND ETHINYL ESTRADIOL [Suspect]
     Indication: CONTRACEPTION
     Dosage: UNK
     Dates: start: 20080501, end: 20090201
  2. YASMIN [Suspect]
     Indication: CONTRACEPTION
     Dosage: UNK
     Dates: start: 20080501, end: 20090201
  3. FLUOXETINE [Concomitant]
     Dosage: UNK
     Route: 048
     Dates: start: 20081130

REACTIONS (3)
  - PULMONARY EMBOLISM [None]
  - PAIN [None]
  - THROMBOSIS [None]
